FAERS Safety Report 9501710 (Version 3)
Quarter: 2014Q2

REPORT INFORMATION
  Report Type: Spontaneous
  Country: AR (occurrence: AR)
  Receive Date: 20130905
  Receipt Date: 20140514
  Transmission Date: 20141212
  Serious: Yes (Other)
  Sender: FDA-Public Use
  Company Number: AR-PFIZER INC-2013254404

PATIENT
  Age: 10 Year
  Sex: Male

DRUGS (2)
  1. GENOTROPIN [Suspect]
     Indication: RENAL FAILURE CHRONIC
     Dosage: 1.5 TO 2 MG, DAILY
     Dates: start: 20130730, end: 201309
  2. GENOTROPIN [Suspect]
     Dosage: 1.5 TO 2 MG, DAILY
     Dates: start: 201310, end: 20131104

REACTIONS (1)
  - Renal failure chronic [Not Recovered/Not Resolved]
